FAERS Safety Report 7631075-4 (Version None)
Quarter: 2011Q3

REPORT INFORMATION
  Report Type: 
  Country: None (occurrence: None)
  Receive Date: 20110725
  Receipt Date: 20110719
  Transmission Date: 20111222
  Serious: Yes (Death)
  Sender: FDA-Public Use
  Company Number: US-CELGENEUS-163-21880-11030266

PATIENT
  Sex: Male

DRUGS (7)
  1. REVLIMID [Suspect]
     Dosage: 10 MILLIGRAM
     Route: 048
     Dates: start: 20090701
  2. VELCADE [Concomitant]
     Dosage: 1 MILLIGRAM/SQ. METER
     Route: 065
  3. THALOMID [Concomitant]
     Dosage: 100 MILLIGRAM
     Route: 065
  4. REVLIMID [Suspect]
     Indication: MULTIPLE MYELOMA
     Dosage: 2.5 MILLIGRAM
     Route: 048
     Dates: start: 20101101
  5. DEXAMETHASONE [Concomitant]
     Dosage: 40 MILLIGRAM
     Route: 065
     Dates: start: 20101101
  6. REVLIMID [Suspect]
     Dosage: 5 MG - 25 MG
     Route: 048
     Dates: start: 20100801, end: 20100101
  7. DOXIL [Concomitant]
     Dosage: 4 MILLIGRAM/SQ. METER
     Route: 065

REACTIONS (2)
  - MULTIPLE MYELOMA [None]
  - TREATMENT FAILURE [None]
